FAERS Safety Report 10447883 (Version 4)
Quarter: 2015Q1

REPORT INFORMATION
  Report Type: Spontaneous
  Country: US (occurrence: US)
  Receive Date: 20140911
  Receipt Date: 20150203
  Transmission Date: 20150720
  Serious: Yes (Hospitalization, Other)
  Sender: FDA-Public Use
  Company Number: US-DSJP-DSU-2014-110797

PATIENT

DRUGS (6)
  1. BENICAR [Suspect]
     Active Substance: OLMESARTAN MEDOXOMIL
     Indication: PRODUCT USED FOR UNKNOWN INDICATION
     Dosage: UNK
     Route: 048
     Dates: start: 2005, end: 201311
  2. BENICAR [Suspect]
     Active Substance: OLMESARTAN MEDOXOMIL
     Dosage: UNK
     Route: 048
  3. BENICAR HCT [Suspect]
     Active Substance: HYDROCHLOROTHIAZIDE\OLMESARTAN MEDOXOMIL
     Dosage: 40/12.5 MG
     Dates: end: 201111
  4. BENICAR HCT [Suspect]
     Active Substance: HYDROCHLOROTHIAZIDE\OLMESARTAN MEDOXOMIL
     Indication: HYPERTENSION
     Dosage: 40/25 MG
     Dates: start: 2010
  5. BENICAR HCT [Suspect]
     Active Substance: HYDROCHLOROTHIAZIDE\OLMESARTAN MEDOXOMIL
     Dosage: 40/12.5 MG
     Dates: start: 2012, end: 201311
  6. BENICAR HCT [Suspect]
     Active Substance: HYDROCHLOROTHIAZIDE\OLMESARTAN MEDOXOMIL
     Dosage: 20/12.5 MG
     Dates: start: 201111, end: 2012

REACTIONS (12)
  - Gastrooesophageal reflux disease [Unknown]
  - Ulcer haemorrhage [Not Recovered/Not Resolved]
  - Acute kidney injury [Unknown]
  - Back disorder [Not Recovered/Not Resolved]
  - Spinal osteoarthritis [Not Recovered/Not Resolved]
  - Pancreatitis [Unknown]
  - Oesophageal ulcer [Unknown]
  - Malabsorption [Recovering/Resolving]
  - Osteoporosis [Not Recovered/Not Resolved]
  - Hypotension [Unknown]
  - Chronic gastritis [Unknown]
  - Diverticulum [Unknown]

NARRATIVE: CASE EVENT DATE: 2010
